FAERS Safety Report 6814894-3 (Version None)
Quarter: 2010Q3

REPORT INFORMATION
  Report Type: 
  Country: None (occurrence: None)
  Receive Date: 20100702
  Receipt Date: 20100624
  Transmission Date: 20110219
  Serious: Yes (Hospitalization)
  Sender: FDA-Public Use
  Company Number: PL-PFIZER INC-2010079409

PATIENT
  Age: 35 Year
  Sex: Female

DRUGS (4)
  1. AZITHROMYCIN [Suspect]
     Dosage: UNK
     Route: 048
  2. AZITHROMYCIN [Suspect]
     Dosage: 500 MG, 1X/DAY
     Route: 042
  3. CEFTRIAXONE [Suspect]
     Dosage: 2G/DAY
     Route: 042
  4. ROBITUSSIN ^WYETH^ [Suspect]
     Dosage: UNK

REACTIONS (1)
  - DRUG INEFFECTIVE FOR UNAPPROVED INDICATION [None]
